FAERS Safety Report 4402886-3 (Version None)
Quarter: 2004Q3

REPORT INFORMATION
  Report Type: 
  Country: None (occurrence: None)
  Receive Date: 20040719
  Receipt Date: 20040706
  Transmission Date: 20050211
  Serious: Yes (Hospitalization)
  Sender: FDA-Public Use
  Company Number: 2004045387

PATIENT
  Age: 51 Year
  Sex: Female

DRUGS (11)
  1. LIPITOR [Suspect]
     Indication: ILL-DEFINED DISORDER
     Dates: start: 20030301, end: 20040601
  2. BOSENTAN [Suspect]
     Indication: PULMONARY HYPERTENSION
     Dosage: 250 MG (125 MG, 2 IN 1 D), ORAL
     Route: 048
     Dates: start: 20020428, end: 20040601
  3. TORSEMIDE [Concomitant]
  4. ANOVLAR (ETHINYLESTRADIOL, NORETHISTERONE ACETATE) [Concomitant]
  5. OMEPRAZOLE [Concomitant]
  6. QUETIAPINE [Concomitant]
  7. LEVOTHYROXINE SODIUM [Concomitant]
  8. POTASSIUM CHLORIDE [Concomitant]
  9. SILDENAFIL CITRATE [Concomitant]
  10. VICODIN [Concomitant]
  11. PAROXETINE HCL [Concomitant]

REACTIONS (3)
  - BLOOD AMYLASE INCREASED [None]
  - HEPATITIS ACUTE [None]
  - PAIN IN EXTREMITY [None]
